FAERS Safety Report 9454729 (Version 2)
Quarter: 2013Q3

REPORT INFORMATION
  Report Type: Report from Study
  Country: US (occurrence: US)
  Receive Date: 20130812
  Receipt Date: 20130925
  Transmission Date: 20140515
  Serious: Yes (Hospitalization)
  Sender: FDA-Public Use
  Company Number: US-US-EMD SERONO, INC.-7228789

PATIENT
  Age: 51 Year
  Sex: Female
  Weight: 95 kg

DRUGS (1)
  1. REBIF [Suspect]
     Indication: MULTIPLE SCLEROSIS
     Route: 058
     Dates: start: 20020826

REACTIONS (4)
  - Osteoarthritis [Recovering/Resolving]
  - Uterine leiomyoma [Recovered/Resolved]
  - Temperature intolerance [Unknown]
  - Influenza like illness [Unknown]
